FAERS Safety Report 8253955-1 (Version None)
Quarter: 2012Q2

REPORT INFORMATION
  Report Type: 
  Country: None (occurrence: None)
  Receive Date: 20120402
  Receipt Date: 20120316
  Transmission Date: 20120825
  Serious: No
  Sender: FDA-Public Use
  Company Number: US-AMGEN-USASP2012017361

PATIENT
  Age: 51 Year
  Sex: Male

DRUGS (1)
  1. ENBREL [Suspect]
     Indication: RHEUMATOID ARTHRITIS
     Dosage: 50 MG, QWK
     Dates: start: 20120213

REACTIONS (7)
  - OEDEMA PERIPHERAL [None]
  - ERYTHEMA [None]
  - BUCCAL MUCOSAL ROUGHENING [None]
  - MASS [None]
  - DYSGEUSIA [None]
  - PAIN IN EXTREMITY [None]
  - PRURITUS [None]
